FAERS Safety Report 15353486 (Version 1)
Quarter: 2018Q3

REPORT INFORMATION
  Report Type: Report from Study
  Country: US (occurrence: US)
  Receive Date: 20180905
  Receipt Date: 20180905
  Transmission Date: 20181010
  Serious: Yes (Other)
  Sender: FDA-Public Use
  Company Number: US-ELI_LILLY_AND_COMPANY-US201808015737

PATIENT
  Age: 51 Year
  Sex: Male

DRUGS (1)
  1. OLANZAPINE PAMOATE [Suspect]
     Active Substance: OLANZAPINE PAMOATE
     Indication: SCHIZOAFFECTIVE DISORDER
     Dosage: 405 MG, UNKNOWN
     Route: 030
     Dates: start: 20180828

REACTIONS (8)
  - Post-injection delirium sedation syndrome [Unknown]
  - Mental impairment [Unknown]
  - Gait disturbance [Unknown]
  - Dizziness [Unknown]
  - Sedation [Unknown]
  - Speech disorder [Unknown]
  - Somnolence [Unknown]
  - Hangover [Unknown]

NARRATIVE: CASE EVENT DATE: 20180828
